FAERS Safety Report 4395505-6 (Version None)
Quarter: 2004Q3

REPORT INFORMATION
  Report Type: 
  Country: None (occurrence: None)
  Receive Date: 20040708
  Receipt Date: 20040622
  Transmission Date: 20050211
  Serious: Yes (Other)
  Sender: FDA-Public Use
  Company Number: 200418399BWH

PATIENT
  Age: 72 Year
  Sex: Male

DRUGS (4)
  1. CIPRO [Suspect]
     Dosage: ORAL
     Route: 048
  2. ACTOS [Concomitant]
  3. METFORMIN HCL [Concomitant]
  4. LIPITOR [Concomitant]

REACTIONS (5)
  - ASTHENIA [None]
  - COAGULOPATHY [None]
  - HEPATIC FAILURE [None]
  - LOCALISED INFECTION [None]
  - RENAL FAILURE [None]
